FAERS Safety Report 20500264 (Version 1)
Quarter: 2022Q1

REPORT INFORMATION
  Report Type: Spontaneous
  Country: US (occurrence: None)
  Receive Date: 20220218
  Receipt Date: 20220218
  Transmission Date: 20220423
  Serious: Yes (Hospitalization)
  Sender: FDA-Public Use
  Company Number: None

PATIENT
  Age: 94 Year
  Sex: Male
  Weight: 81.6 kg

DRUGS (18)
  1. BAMLANIVIMAB [Suspect]
     Active Substance: BAMLANIVIMAB
     Indication: COVID-19
     Dosage: FREQUENCY : ONCE;?
     Route: 042
     Dates: start: 20210106, end: 20210106
  2. APIXABAN [Concomitant]
     Active Substance: APIXABAN
     Dates: start: 20170703, end: 20210204
  3. ASCORBIC ACID [Concomitant]
     Active Substance: ASCORBIC ACID
     Dates: start: 20170703
  4. CEFUROXIME AXETIL [Concomitant]
     Active Substance: CEFUROXIME AXETIL
     Dates: start: 20210105, end: 20210109
  5. Cholecaliferol (Vit. D3) [Concomitant]
  6. Cyanocobalamin Inj. [Concomitant]
     Dates: start: 20201217, end: 20210204
  7. DEXAMETHASONE [Concomitant]
     Active Substance: DEXAMETHASONE
     Dates: start: 20210105, end: 20210109
  8. DOCUSATE SODIUM [Concomitant]
     Active Substance: DOCUSATE SODIUM
     Dates: start: 20200709
  9. Lactobac no. 41/bifidobact no. 7 [Concomitant]
     Dates: start: 20191017
  10. MAGNESIUM [Concomitant]
     Active Substance: MAGNESIUM
     Dates: start: 20191017
  11. Naloxone nasal [Concomitant]
     Dates: start: 20201221, end: 20210202
  12. NITROGLYCERIN [Concomitant]
     Active Substance: NITROGLYCERIN
     Dates: start: 20180925
  13. ONDANSETRON [Concomitant]
     Active Substance: ONDANSETRON
     Dates: start: 20200709
  14. POLYETHYLENE GLYCOL [Concomitant]
     Active Substance: POLYETHYLENE GLYCOL
     Dates: start: 20200709
  15. ROSUVASTATIN CALCIUM [Concomitant]
     Active Substance: ROSUVASTATIN CALCIUM
     Dates: start: 20201201, end: 20210204
  16. TRAMADOL [Concomitant]
     Active Substance: TRAMADOL
     Dates: start: 20201221
  17. Ubidecarenone (CO Q-10) [Concomitant]
     Dates: start: 20191017
  18. ZINC [Concomitant]
     Active Substance: ZINC
     Dates: start: 20191017

REACTIONS (2)
  - Acute respiratory failure [None]
  - Pneumonia [None]

NARRATIVE: CASE EVENT DATE: 20210106
